FAERS Safety Report 7636424-9 (Version None)
Quarter: 2011Q3

REPORT INFORMATION
  Report Type: 
  Country: None (occurrence: None)
  Receive Date: 20110719
  Receipt Date: 20110706
  Transmission Date: 20111222
  Serious: Yes (Hospitalization)
  Sender: FDA-Public Use
  Company Number: 2010001056

PATIENT
  Age: 57 Year
  Sex: Female

DRUGS (2)
  1. ERLOTINIB HYDROCHLORIDE [Suspect]
     Indication: NON-SMALL CELL LUNG CANCER
     Dosage: 150 MG, UID/QD, ORAL
     Route: 048
     Dates: start: 20080814, end: 20091001
  2. GRILINCUTUS (DEXTROMETHORPHAN HYDROBROMIDE, GUAIFENESIN) [Concomitant]

REACTIONS (4)
  - GASTROINTESTINAL DISORDER [None]
  - DIARRHOEA [None]
  - UPPER RESPIRATORY TRACT INFECTION [None]
  - VOMITING [None]
